FAERS Safety Report 9301823 (Version 1)
Quarter: 2013Q2

REPORT INFORMATION
  Report Type: Spontaneous
  Country: PR (occurrence: US)
  Receive Date: 20130521
  Receipt Date: 20130521
  Transmission Date: 20140414
  Serious: No
  Sender: FDA-Public Use
  Company Number: US-TEVA-348231USA

PATIENT
  Sex: Female
  Weight: 113.5 kg

DRUGS (5)
  1. ACTIQ [Suspect]
     Indication: FIBROMYALGIA
     Dosage: 4800 MILLIGRAM DAILY;
     Route: 002
  2. ACTIQ [Suspect]
     Indication: BACK PAIN
  3. ACTIQ [Suspect]
     Indication: MIGRAINE
  4. NEURONTIN [Concomitant]
     Indication: PAIN
     Dosage: 800MG + 600MG
     Route: 048
  5. LYRICA [Concomitant]
     Indication: PAIN
     Route: 048

REACTIONS (4)
  - Pain [Not Recovered/Not Resolved]
  - Insomnia [Not Recovered/Not Resolved]
  - Discomfort [Not Recovered/Not Resolved]
  - Off label use [Not Recovered/Not Resolved]
